FAERS Safety Report 20375875 (Version 1)
Quarter: 2022Q1

REPORT INFORMATION
  Report Type: Spontaneous
  Country: PT (occurrence: PT)
  Receive Date: 20220125
  Receipt Date: 20220125
  Transmission Date: 20220423
  Serious: Yes (Death, Hospitalization, Other)
  Sender: FDA-Public Use
  Company Number: PT-BIOMARINAP-PT-2022-141023

PATIENT
  Age: 32 Year
  Sex: Female

DRUGS (1)
  1. NAGLAZYME [Suspect]
     Active Substance: GALSULFASE
     Indication: Product used for unknown indication
     Route: 065

REACTIONS (8)
  - Death [Fatal]
  - Generalised tonic-clonic seizure [Not Recovered/Not Resolved]
  - Respiratory disorder [Not Recovered/Not Resolved]
  - Purulent discharge [Not Recovered/Not Resolved]
  - Inflammation [Not Recovered/Not Resolved]
  - Respiratory gas exchange disorder [Not Recovered/Not Resolved]
  - Electroencephalogram abnormal [Not Recovered/Not Resolved]
  - Pyrexia [Not Recovered/Not Resolved]

NARRATIVE: CASE EVENT DATE: 20211101
